FAERS Safety Report 21886745 (Version 1)
Quarter: 2023Q1

REPORT INFORMATION
  Report Type: Spontaneous
  Country: CN (occurrence: CN)
  Receive Date: 20230119
  Receipt Date: 20230119
  Transmission Date: 20230417
  Serious: Yes (Hospitalization)
  Sender: FDA-Public Use
  Company Number: CN-BAYER-2023A004620

PATIENT
  Age: 76 Year
  Sex: Male

DRUGS (4)
  1. GLUCOBAY [Interacting]
     Active Substance: ACARBOSE
     Indication: Diabetes mellitus
     Dosage: 100 MG, BID
     Route: 048
     Dates: end: 20221230
  2. PIOGLITAZONE AND METFORMIN [Interacting]
     Active Substance: METFORMIN HYDROCHLORIDE\PIOGLITAZONE HYDROCHLORIDE
     Indication: Diabetes mellitus
     Dosage: 515 MG, BID
     Route: 048
     Dates: end: 20221214
  3. PIOGLITAZONE AND METFORMIN [Interacting]
     Active Substance: METFORMIN HYDROCHLORIDE\PIOGLITAZONE HYDROCHLORIDE
     Indication: Diabetes mellitus
     Dosage: ONE TABLET IN THE MORNING AND TWO TABLETS AT NIGHT
     Route: 048
     Dates: start: 20221215, end: 20221230
  4. GLIMEPIRIDE [Interacting]
     Active Substance: GLIMEPIRIDE
     Indication: Diabetes mellitus
     Dosage: 4 MG, QD
     Route: 048
     Dates: end: 20221230

REACTIONS (4)
  - Hypoglycaemia [Recovering/Resolving]
  - Asthenia [Recovering/Resolving]
  - Fall [Recovering/Resolving]
  - Blood glucose abnormal [None]

NARRATIVE: CASE EVENT DATE: 20221201
